FAERS Safety Report 10174068 (Version 2)
Quarter: 2014Q2

REPORT INFORMATION
  Report Type: Spontaneous
  Country: US (occurrence: US)
  Receive Date: 20140515
  Receipt Date: 20140515
  Transmission Date: 20141212
  Serious: Yes (Hospitalization)
  Sender: FDA-Public Use
  Company Number: GXKR2003US00799

PATIENT
  Age: 56 Year
  Sex: Male

DRUGS (14)
  1. SIMVASTATIN [Suspect]
     Indication: HYPERCHOLESTEROLAEMIA
     Dosage: 40 MG, QD
     Route: 048
  2. SIMVASTATIN [Interacting]
     Indication: HYPERLIPIDAEMIA
     Dosage: 80 MG, QD
     Route: 048
  3. NEFAZODONE [Interacting]
  4. AZITHROMYCIN [Suspect]
     Indication: UPPER RESPIRATORY TRACT INFECTION
  5. AZITHROMYCIN [Suspect]
     Indication: SINUSITIS
  6. FEXOFENADINE [Suspect]
     Indication: NASAL CONGESTION
  7. FEXOFENADINE [Suspect]
     Indication: UPPER RESPIRATORY TRACT INFECTION
  8. FEXOFENADINE [Suspect]
     Indication: SINUSITIS
  9. TEMAZEPAM [Suspect]
  10. BUSPIRONE [Concomitant]
  11. LISINOPRIL [Concomitant]
  12. ASPIRINE [Concomitant]
  13. IBUPROFEN [Concomitant]
  14. ISOMETHEPTENE MUCATE [Concomitant]
     Indication: HEADACHE

REACTIONS (6)
  - Drug interaction [Not Recovered/Not Resolved]
  - Rhabdomyolysis [Recovering/Resolving]
  - Pain in extremity [Recovering/Resolving]
  - Back pain [Recovering/Resolving]
  - Chromaturia [Recovering/Resolving]
  - Blood creatine phosphokinase increased [Recovering/Resolving]
